FAERS Safety Report 7535312-6 (Version None)
Quarter: 2011Q2

REPORT INFORMATION
  Report Type: 
  Country: None (occurrence: None)
  Receive Date: 20110609
  Receipt Date: 20071219
  Transmission Date: 20111010
  Serious: Yes (Hospitalization, Other)
  Sender: FDA-Public Use
  Company Number: PHNU2007DE01322

PATIENT
  Sex: Female
  Weight: 84 kg

DRUGS (6)
  1. ASPIRIN [Concomitant]
     Indication: HYPERTENSION
     Route: 065
     Dates: start: 20010501
  2. ZOMETA [Concomitant]
     Indication: OSTEOPOROSIS
  3. INTERFERON [Concomitant]
  4. TAMOXIFEN CITRATE [Suspect]
     Dosage: 20 MG/DAY
     Route: 048
     Dates: start: 20010525, end: 20050521
  5. FEMARA [Suspect]
     Indication: BREAST CANCER
     Dosage: 2.5 MG, QD
     Route: 048
     Dates: start: 20041217
  6. LEVOTHYROXINE SODIUM [Concomitant]
     Route: 048
     Dates: start: 20010501

REACTIONS (6)
  - MELANOMA RECURRENT [None]
  - METASTATIC MALIGNANT MELANOMA [None]
  - DISEASE PROGRESSION [None]
  - MALIGNANT MELANOMA [None]
  - VARICOSE VEIN [None]
  - DRUG INTOLERANCE [None]
